FAERS Safety Report 4496763-X (Version None)
Quarter: 2004Q4

REPORT INFORMATION
  Report Type: 
  Country: None (occurrence: None)
  Receive Date: 20041109
  Receipt Date: 20041103
  Transmission Date: 20050328
  Serious: Yes (Life-Threatening)
  Sender: FDA-Public Use
  Company Number: CH-ROCHE-385283

PATIENT
  Age: 60 Year
  Sex: Female
  Weight: 100 kg

DRUGS (8)
  1. TOREM [Suspect]
     Route: 048
  2. ACETYLSALICYLIC ACID [Suspect]
     Route: 065
  3. ZYLORIC [Suspect]
     Indication: HYPERURICAEMIA
     Dosage: LONG TERM USE.
     Route: 048
     Dates: end: 20041012
  4. NORVASC [Suspect]
     Indication: ESSENTIAL HYPERTENSION
     Dosage: LONG TERM USE
     Route: 048
     Dates: end: 20041012
  5. ALDACTONE [Concomitant]
  6. BELOC-ZOK [Concomitant]
  7. COZAAR [Concomitant]
  8. SINTROM [Concomitant]
     Indication: EMBOLISM

REACTIONS (9)
  - APLASTIC ANAEMIA [None]
  - ATRIAL FIBRILLATION [None]
  - ATRIAL THROMBOSIS [None]
  - CARDIAC FAILURE [None]
  - HYPERTENSIVE HEART DISEASE [None]
  - HYPOTENSION [None]
  - PANCYTOPENIA [None]
  - PERIPHERAL EMBOLISM [None]
  - RENAL FAILURE CHRONIC [None]
